FAERS Safety Report 23244786 (Version 1)
Quarter: 2023Q4

REPORT INFORMATION
  Report Type: Spontaneous
  Country: US (occurrence: US)
  Receive Date: 20231130
  Receipt Date: 20231130
  Transmission Date: 20240109
  Serious: No
  Sender: FDA-Public Use
  Company Number: US-ALVOGEN-2023089406

PATIENT
  Sex: Male

DRUGS (2)
  1. TERIPARATIDE [Suspect]
     Active Substance: TERIPARATIDE
     Indication: Product used for unknown indication
  2. TERIPARATIDE [Suspect]
     Active Substance: TERIPARATIDE
     Indication: Product used for unknown indication
     Dosage: EXPIRATION DATE: UU-MAY-2024?PRESCRIPTION RECEIVED DATE: 07-MAR-2023?FIRST DOSAGE OF THIS PEN

REACTIONS (5)
  - Encopresis [Unknown]
  - Device malfunction [Unknown]
  - Product contamination physical [Unknown]
  - Product packaging issue [Unknown]
  - Device operational issue [Unknown]
